FAERS Safety Report 22074756 (Version 3)
Quarter: 2023Q2

REPORT INFORMATION
  Report Type: Spontaneous
  Country: US (occurrence: US)
  Receive Date: 20230308
  Receipt Date: 20230403
  Transmission Date: 20230721
  Serious: Yes (Other)
  Sender: FDA-Public Use
  Company Number: US-Blueprint Medicines Corporation-925

PATIENT
  Sex: Male

DRUGS (1)
  1. AYVAKIT [Suspect]
     Active Substance: AVAPRITINIB
     Indication: Gastrointestinal stromal tumour
     Route: 065
     Dates: start: 20230124

REACTIONS (19)
  - Deep vein thrombosis [Unknown]
  - Thrombosis [Unknown]
  - Muscle rupture [Unknown]
  - Contusion [Unknown]
  - Hypersomnia [Unknown]
  - Erythema [Unknown]
  - Orbital swelling [Unknown]
  - Dizziness postural [Unknown]
  - Joint swelling [Recovering/Resolving]
  - Blood glucose increased [Unknown]
  - Red blood cell count decreased [Unknown]
  - Haematocrit abnormal [Unknown]
  - Periorbital swelling [Unknown]
  - Joint stiffness [Unknown]
  - Skin tightness [Unknown]
  - Haemoglobin abnormal [Unknown]
  - Peripheral swelling [Recovering/Resolving]
  - Blood bilirubin increased [Unknown]
  - Fatigue [Unknown]
